FAERS Safety Report 12830609 (Version 1)
Quarter: 2016Q4

REPORT INFORMATION
  Report Type: Spontaneous
  Country: US (occurrence: US)
  Receive Date: 20161007
  Receipt Date: 20161007
  Transmission Date: 20170207
  Serious: No
  Sender: FDA-Public Use
  Company Number: US-SANOFI-AVENTIS-2013SA041694

PATIENT
  Age: 43 Year
  Sex: Female

DRUGS (1)
  1. AUBAGIO [Suspect]
     Active Substance: TERIFLUNOMIDE
     Indication: MULTIPLE SCLEROSIS
     Dosage: THERAPY START DATE - A COUPLE OF MONTH AGO.
     Route: 048
     Dates: start: 201302

REACTIONS (2)
  - Diarrhoea [Recovered/Resolved]
  - Nausea [Recovered/Resolved]
